FAERS Safety Report 6900607-3 (Version None)
Quarter: 2010Q3

REPORT INFORMATION
  Report Type: 
  Country: None (occurrence: None)
  Receive Date: 20100730
  Receipt Date: 20100720
  Transmission Date: 20110219
  Serious: Yes (Life-Threatening)
  Sender: FDA-Public Use
  Company Number: AUR-APL-2010-01754

PATIENT
  Age: 91 Year
  Sex: Male

DRUGS (12)
  1. LISINOPRIL AND HYDROCHLOROTHIAZIDE [Suspect]
     Indication: HYPERTENSION
     Dosage: 20/12.5MG, DAILY, ORAL
     Route: 048
     Dates: start: 20080528, end: 20100528
  2. ENALAPRIL MALEATE [Suspect]
     Indication: HYPERTENSION
     Dosage: 10 MG, DAILY, ORAL
     Route: 048
     Dates: start: 20080528, end: 20100528
  3. ALDACTONE [Suspect]
     Indication: HYPERTENSION
     Dosage: 0.5DF, DAILY, ORAL
     Route: 048
     Dates: start: 20100525, end: 20100528
  4. LASIX [Suspect]
     Indication: HYPERTENSION
     Dosage: 1DF, DAILY, ORAL
     Route: 048
     Dates: start: 20080528, end: 20100528
  5. ZOLPIDEM TARTRATE [Concomitant]
  6. OMEPRAZOLE [Concomitant]
  7. INSULIN [Concomitant]
  8. CLEXANE [Concomitant]
  9. ASPIRIN [Concomitant]
  10. PLAVIX [Concomitant]
  11. COEFFERALGAN [Concomitant]
  12. AUGMENTIN '125' [Concomitant]

REACTIONS (1)
  - HYPOVOLAEMIC SHOCK [None]
